FAERS Safety Report 14280008 (Version 2)
Quarter: 2018Q1

REPORT INFORMATION
  Report Type: Report from Study
  Country: None (occurrence: US)
  Receive Date: 20171213
  Receipt Date: 20180118
  Transmission Date: 20180508
  Serious: Yes (Other)
  Sender: FDA-Public Use
  Company Number: US-ABBVIE-17P-163-2182645-00

PATIENT
  Age: 37 Year
  Sex: Female

DRUGS (3)
  1. LUPRON DEPOT [Suspect]
     Active Substance: LEUPROLIDE ACETATE
     Indication: ENDOMETRIOSIS
     Route: 050
     Dates: start: 2006, end: 2006
  2. LUPRON DEPOT [Suspect]
     Active Substance: LEUPROLIDE ACETATE
     Indication: ENDOMETRIOSIS
     Route: 050
     Dates: start: 20171213
  3. MULTIVITAMIN [Concomitant]
     Active Substance: VITAMINS
     Indication: VITAMIN SUPPLEMENTATION
     Route: 048

REACTIONS (28)
  - Breast swelling [Recovered/Resolved]
  - Dyspepsia [Not Recovered/Not Resolved]
  - Bronchitis [Recovered/Resolved]
  - Hot flush [Not Recovered/Not Resolved]
  - Proctalgia [Not Recovered/Not Resolved]
  - Rubber sensitivity [Not Recovered/Not Resolved]
  - Erythema [Unknown]
  - Upper respiratory tract infection [Not Recovered/Not Resolved]
  - Dizziness [Not Recovered/Not Resolved]
  - Mucous stools [Not Recovered/Not Resolved]
  - Mass [Unknown]
  - Hypoaesthesia [Not Recovered/Not Resolved]
  - Chest pain [Recovering/Resolving]
  - Insomnia [Not Recovered/Not Resolved]
  - Influenza [Recovered/Resolved]
  - Endometriosis [Recovering/Resolving]
  - Blood cholesterol increased [Not Recovered/Not Resolved]
  - Pelvic pain [Not Recovered/Not Resolved]
  - Endometriosis [Unknown]
  - Anxiety [Not Recovered/Not Resolved]
  - Eructation [Not Recovered/Not Resolved]
  - Hot flush [Recovered/Resolved]
  - Nausea [Not Recovered/Not Resolved]
  - Seasonal allergy [Not Recovered/Not Resolved]
  - Wheezing [Recovered/Resolved]
  - Night sweats [Recovered/Resolved]
  - Cough [Recovered/Resolved]
  - Vaginal infection [Recovered/Resolved]

NARRATIVE: CASE EVENT DATE: 2006
